FAERS Safety Report 20928728 (Version 5)
Quarter: 2022Q3

REPORT INFORMATION
  Report Type: Spontaneous
  Country: JP (occurrence: JP)
  Receive Date: 20220607
  Receipt Date: 20220708
  Transmission Date: 20221026
  Serious: Yes (Death, Hospitalization, Other)
  Sender: FDA-Public Use
  Company Number: JP-NBI-J202209839BIPI

PATIENT
  Age: 87 Year
  Sex: Male
  Weight: 45.5 kg

DRUGS (16)
  1. DABIGATRAN ETEXILATE MESYLATE [Suspect]
     Active Substance: DABIGATRAN ETEXILATE MESYLATE
     Indication: Atrial fibrillation
     Route: 048
     Dates: end: 20220531
  2. ATENOLOL [Suspect]
     Active Substance: ATENOLOL
     Indication: Hypertension
     Route: 048
     Dates: end: 20220531
  3. ATENOLOL [Suspect]
     Active Substance: ATENOLOL
     Indication: Angina pectoris
  4. ATENOLOL [Suspect]
     Active Substance: ATENOLOL
     Indication: Atrial fibrillation
  5. ATENOLOL [Suspect]
     Active Substance: ATENOLOL
     Indication: Product used for unknown indication
  6. ASPIRIN [Concomitant]
     Active Substance: ASPIRIN
     Indication: Angina pectoris
     Route: 048
     Dates: end: 20220531
  7. ASPIRIN [Concomitant]
     Active Substance: ASPIRIN
     Indication: Product used for unknown indication
  8. CANDESARTAN [Concomitant]
     Active Substance: CANDESARTAN
     Indication: Hypertension
     Route: 048
     Dates: end: 20220531
  9. FEBUXOSTAT [Concomitant]
     Active Substance: FEBUXOSTAT
     Indication: Hyperuricaemia
     Route: 048
     Dates: end: 20220531
  10. FEBUXOSTAT [Concomitant]
     Active Substance: FEBUXOSTAT
     Indication: Product used for unknown indication
  11. ICOSAPENT ETHYL [Concomitant]
     Active Substance: ICOSAPENT ETHYL
     Indication: Product used for unknown indication
     Route: 048
     Dates: end: 20220531
  12. PHENLASE [Concomitant]
     Indication: Dyspepsia
     Route: 048
     Dates: end: 20220531
  13. PHENLASE [Concomitant]
     Indication: Product used for unknown indication
  14. VASOLAN [Concomitant]
     Indication: Atrial fibrillation
     Route: 048
     Dates: end: 20220531
  15. VASOLAN [Concomitant]
     Indication: Angina pectoris
  16. MARZULENE [Concomitant]
     Indication: Product used for unknown indication
     Route: 048
     Dates: end: 20220531

REACTIONS (3)
  - Gastrointestinal haemorrhage [Fatal]
  - Acute kidney injury [Fatal]
  - Circulatory collapse [Fatal]

NARRATIVE: CASE EVENT DATE: 20220601
